FAERS Safety Report 23070169 (Version 1)
Quarter: 2023Q4

REPORT INFORMATION
  Report Type: Spontaneous
  Country: US (occurrence: US)
  Receive Date: 20231016
  Receipt Date: 20231016
  Transmission Date: 20240110
  Serious: Yes (Death, Other)
  Sender: FDA-Public Use
  Company Number: US-PFIZER INC-PV202300098194

PATIENT
  Age: 91 Year
  Sex: Male
  Weight: 74.84 kg

DRUGS (5)
  1. VYNDAMAX [Suspect]
     Active Substance: TAFAMIDIS
     Indication: Amyloidosis
     Dosage: 61 MG, ONCE A DAY
     Route: 048
     Dates: start: 2021, end: 20230927
  2. XARELTO [Concomitant]
     Active Substance: RIVAROXABAN
     Indication: Anticoagulant therapy
     Dosage: 15 MG, 1X/DAY (BEEN ON IT ABOUT 3 YEARS)
     Route: 048
     Dates: end: 20230927
  3. AMIODARONE HYDROCHLORIDE [Concomitant]
     Active Substance: AMIODARONE HYDROCHLORIDE
     Dosage: 200MG 1/2 TABLETS ONCE A DAY (BEEN ON IT FOR THE PAST COUPLE OF YEARS)
     Dates: end: 20230927
  4. LEVOTHYROXINE [Concomitant]
     Active Substance: LEVOTHYROXINE
     Indication: Hypothyroidism
     Dosage: 125 UG, 1X/DAY (BEEN ON IT 2-3 YEARS)
     Route: 048
     Dates: end: 20230927
  5. VITAMIN D2 [Concomitant]
     Active Substance: ERGOCALCIFEROL
     Indication: Fatigue
     Dosage: 1.25MG/50,000 UNITS 1 CAPSULES 2 TIMES A WEEK FOR 8 WEEKS (ON HIS 3RD WEEK)

REACTIONS (5)
  - Road traffic accident [Fatal]
  - Thoracic vertebral fracture [Fatal]
  - Chest injury [Fatal]
  - Aortic injury [Fatal]
  - Product dose omission issue [Unknown]

NARRATIVE: CASE EVENT DATE: 20230927
